FAERS Safety Report 9334674 (Version 1)
Quarter: 2013Q2

REPORT INFORMATION
  Report Type: Spontaneous
  Country: US (occurrence: US)
  Receive Date: 20130606
  Receipt Date: 20130606
  Transmission Date: 20140414
  Serious: No
  Sender: FDA-Public Use
  Company Number: US-AMGEN-USASP2013024281

PATIENT
  Age: 76 Year
  Sex: Female

DRUGS (2)
  1. PROLIA [Suspect]
     Indication: OSTEOPOROSIS
     Dosage: UNK
     Dates: start: 20130301
  2. OMEPRAZOLE [Concomitant]

REACTIONS (12)
  - Fear of disease [Unknown]
  - Nausea [Unknown]
  - Vomiting [Unknown]
  - Diarrhoea [Unknown]
  - Abdominal pain [Unknown]
  - Somnolence [Unknown]
  - Pain [Unknown]
  - Vision blurred [Unknown]
  - Abdominal pain upper [Unknown]
  - Constipation [Unknown]
  - Insomnia [Unknown]
  - Flatulence [Unknown]
